FAERS Safety Report 8910859 (Version 2)
Quarter: 2012Q4

REPORT INFORMATION
  Report Type: Report from Study
  Country: US (occurrence: US)
  Receive Date: 20121116
  Receipt Date: 20121127
  Transmission Date: 20130627
  Serious: Yes (Hospitalization)
  Sender: FDA-Public Use
  Company Number: US-SANOFI-AVENTIS-2012SA082781

PATIENT
  Age: 65 Year
  Sex: Male

DRUGS (1)
  1. ZALTRAP [Suspect]
     Indication: METASTATIC COLORECTAL CANCER
     Route: 041
     Dates: start: 20121106, end: 20121106

REACTIONS (1)
  - Mental status changes [Recovered/Resolved]
